FAERS Safety Report 11231135 (Version 1)
Quarter: 2015Q2

REPORT INFORMATION
  Report Type: Spontaneous
  Country: US (occurrence: None)
  Receive Date: 20150629
  Receipt Date: 20150629
  Transmission Date: 20150821
  Serious: Yes (Life-Threatening)
  Sender: FDA-Public Use
  Company Number: None

PATIENT
  Age: 27 Year
  Sex: Male
  Weight: 83.92 kg

DRUGS (1)
  1. TRAMADOL 50 MG ZYDUS [Suspect]
     Active Substance: TRAMADOL
     Indication: TOOTH INFECTION
     Dosage: TAKEN BY MOUTH
     Route: 048
     Dates: start: 20150626, end: 20150627

REACTIONS (3)
  - Abnormal sleep-related event [None]
  - Respiratory arrest [None]
  - Hypopnoea [None]

NARRATIVE: CASE EVENT DATE: 20150627
